FAERS Safety Report 19212031 (Version 1)
Quarter: 2021Q2

REPORT INFORMATION
  Report Type: Spontaneous
  Country: JP (occurrence: JP)
  Receive Date: 20210504
  Receipt Date: 20210504
  Transmission Date: 20210717
  Serious: Yes (Hospitalization)
  Sender: FDA-Public Use
  Company Number: JP-PFIZER INC-2021467336

PATIENT
  Age: 87 Year
  Sex: Male

DRUGS (1)
  1. SALAZOPYRIN 500MG [Suspect]
     Active Substance: SULFASALAZINE
     Indication: COLITIS ISCHAEMIC
     Dosage: 6 DF, DAILY,3000MG IN TOTAL
     Route: 048
     Dates: start: 202009

REACTIONS (2)
  - Rash [Unknown]
  - Off label use [Unknown]
